FAERS Safety Report 15747939 (Version 1)
Quarter: 2018Q4

REPORT INFORMATION
  Report Type: Spontaneous
  Country: GB (occurrence: GB)
  Receive Date: 20181221
  Receipt Date: 20181221
  Transmission Date: 20190205
  Serious: Yes (Other)
  Sender: FDA-Public Use
  Company Number: GB-TEVA-2018-GB-989478

PATIENT
  Age: 24 Year
  Sex: Male
  Weight: 133.35 kg

DRUGS (3)
  1. METRONIDAZOLE. [Suspect]
     Active Substance: METRONIDAZOLE
     Indication: DIVERTICULITIS
     Route: 048
  2. PHENOXYMETHYLPENICILLIN [Concomitant]
     Active Substance: PENICILLIN V
  3. CIPROFLOXACIN. [Concomitant]
     Active Substance: CIPROFLOXACIN

REACTIONS (6)
  - Pain [Unknown]
  - Nightmare [Recovering/Resolving]
  - Sleep disorder [Unknown]
  - Anxiety [Recovering/Resolving]
  - Feeling abnormal [Recovered/Resolved]
  - Inappropriate affect [Recovering/Resolving]
